FAERS Safety Report 26131796 (Version 2)
Quarter: 2025Q4

REPORT INFORMATION
  Report Type: Spontaneous
  Country: US (occurrence: US)
  Receive Date: 20251208
  Receipt Date: 20251223
  Transmission Date: 20260118
  Serious: Yes (Hospitalization, Other)
  Sender: GLAXOSMITHKLINE
  Company Number: US-GSK-US2025GSK157341

PATIENT
  Age: 18 Year
  Sex: Male

DRUGS (2)
  1. BUPROPION HYDROCHLORIDE [Interacting]
     Active Substance: BUPROPION HYDROCHLORIDE
     Indication: Product used for unknown indication
     Dosage: 30-300 MG
  2. FENTANYL [Interacting]
     Active Substance: FENTANYL
     Indication: Sedative therapy

REACTIONS (4)
  - Intestinal pseudo-obstruction [Recovered/Resolved]
  - Toxicity to various agents [Recovered/Resolved]
  - Overdose [Unknown]
  - Drug interaction [Unknown]
